FAERS Safety Report 21212741 (Version 3)
Quarter: 2022Q3

REPORT INFORMATION
  Report Type: Report from Study
  Country: GB (occurrence: GB)
  Receive Date: 20220815
  Receipt Date: 20220829
  Transmission Date: 20221026
  Serious: Yes (Hospitalization, Other)
  Sender: FDA-Public Use
  Company Number: GB-NOVARTISPH-NVSC2022GB183615

PATIENT
  Sex: Female

DRUGS (2)
  1. COSENTYX [Suspect]
     Active Substance: SECUKINUMAB
     Indication: Psoriasis
     Dosage: 300 MG, QMO
     Route: 058
     Dates: start: 20180308
  2. COSENTYX [Suspect]
     Active Substance: SECUKINUMAB
     Dosage: UNK ON 01 JUL
     Route: 065

REACTIONS (6)
  - Open fracture [Unknown]
  - Accident [Unknown]
  - Limb injury [Unknown]
  - Psoriasis [Unknown]
  - Skin lesion [Unknown]
  - Joint injury [Unknown]
